FAERS Safety Report 19004520 (Version 4)
Quarter: 2022Q1

REPORT INFORMATION
  Report Type: Spontaneous
  Country: JP (occurrence: JP)
  Receive Date: 20210313
  Receipt Date: 20220202
  Transmission Date: 20220423
  Serious: Yes (Other)
  Sender: FDA-Public Use
  Company Number: JP-CHUGAI-A2021009536ROCHE

PATIENT
  Age: 73 Year
  Sex: Female

DRUGS (16)
  1. ACTEMRA [Suspect]
     Active Substance: TOCILIZUMAB
     Indication: Still^s disease
     Dosage: DATE OF LAST DOSE: 18/FEB/2021
     Route: 041
     Dates: start: 202102, end: 20210218
  2. ACTEMRA [Suspect]
     Active Substance: TOCILIZUMAB
     Dosage: UNK
     Route: 041
     Dates: start: 202102, end: 202102
  3. PREDONINE [Suspect]
     Active Substance: PREDNISOLONE
     Indication: Still^s disease
     Dosage: DOSAGE IS UNCERTAIN.
     Route: 065
     Dates: start: 20210105, end: 202101
  4. PREDONINE [Suspect]
     Active Substance: PREDNISOLONE
     Dosage: DOSAGE IS UNCERTAIN.
     Route: 065
     Dates: start: 202101, end: 2021
  5. PREDONINE [Suspect]
     Active Substance: PREDNISOLONE
     Dosage: DOSAGE IS UNCERTAIN.
     Route: 065
     Dates: start: 20210210
  6. PREDONINE [Suspect]
     Active Substance: PREDNISOLONE
     Dosage: DOSE INTERVAL UNCERTAINTY
     Route: 065
     Dates: start: 20210222
  7. PREDONINE [Suspect]
     Active Substance: PREDNISOLONE
     Dosage: DOSE INTERVAL UNCERTAINTY
     Route: 065
     Dates: start: 20210306
  8. PREDONINE [Suspect]
     Active Substance: PREDNISOLONE
     Dosage: DOSE INTERVAL UNCERTAINTY
     Route: 065
     Dates: start: 20210313
  9. PREDONINE [Suspect]
     Active Substance: PREDNISOLONE
     Dosage: DOSE INTERVAL UNCERTAINTY
     Route: 065
     Dates: start: 20210320
  10. PROGRAF [Concomitant]
     Active Substance: TACROLIMUS
     Dosage: DOSE INTERVAL UNCERTAINTY
     Route: 065
     Dates: start: 20210222, end: 20210224
  11. NEXIUM [Concomitant]
     Active Substance: ESOMEPRAZOLE MAGNESIUM
     Dosage: DOSAGE IS UNCERTAIN.
     Route: 065
  12. LACTULOSE [Concomitant]
     Active Substance: LACTULOSE
     Dosage: DOSAGE IS UNCERTAIN.
     Route: 048
  13. OMEPRAZOLE [Concomitant]
     Active Substance: OMEPRAZOLE
     Dosage: DOSAGE IS UNCERTAIN.
     Route: 065
  14. GANCICLOVIR [Concomitant]
     Active Substance: GANCICLOVIR
     Indication: Cytomegalovirus infection
     Dosage: DOSAGE IS UNCERTAIN.
     Route: 065
     Dates: start: 20210210, end: 20210226
  15. MORIHEPAMIN [Concomitant]
     Dosage: DOSAGE IS UNCERTAIN.
     Route: 065
  16. LACTULOSE [Concomitant]
     Active Substance: LACTULOSE
     Indication: Hepatic encephalopathy
     Dosage: DOSAGE IS UNCERTAIN.
     Route: 065
     Dates: start: 20210210

REACTIONS (6)
  - Altered state of consciousness [Unknown]
  - Enterocolitis [Unknown]
  - Diverticular perforation [Recovered/Resolved]
  - Peritonitis [Unknown]
  - C-reactive protein increased [Unknown]
  - Large intestine perforation [Unknown]

NARRATIVE: CASE EVENT DATE: 20210225
